FAERS Safety Report 25009145 (Version 2)
Quarter: 2025Q1

REPORT INFORMATION
  Report Type: Spontaneous
  Country: US (occurrence: US)
  Receive Date: 20250225
  Receipt Date: 20250327
  Transmission Date: 20250408
  Serious: Yes (Hospitalization, Disabling, Other)
  Sender: AMGEN
  Company Number: US-AMGEN-USASP2025032939

PATIENT
  Age: 82 Year
  Sex: Female

DRUGS (2)
  1. REPATHA [Suspect]
     Active Substance: EVOLOCUMAB
     Indication: Blood cholesterol abnormal
     Dosage: 140 MILLIGRAM, Q2WK
     Route: 065
  2. REPATHA [Suspect]
     Active Substance: EVOLOCUMAB
     Indication: Blood cholesterol abnormal

REACTIONS (6)
  - Fall [Unknown]
  - Joint injury [Not Recovered/Not Resolved]
  - Surgery [Unknown]
  - Drug dose omission by device [Unknown]
  - Device difficult to use [Unknown]
  - Product preparation error [Unknown]

NARRATIVE: CASE EVENT DATE: 20241201
